FAERS Safety Report 14790237 (Version 1)
Quarter: 2018Q2

REPORT INFORMATION
  Report Type: Report from Study
  Country: BE (occurrence: BE)
  Receive Date: 20180423
  Receipt Date: 20180423
  Transmission Date: 20180711
  Serious: Yes (Hospitalization)
  Sender: FDA-Public Use
  Company Number: BE-ACCORD-065975

PATIENT
  Age: 73 Year
  Sex: Male
  Weight: 80 kg

DRUGS (2)
  1. XELODA [Suspect]
     Active Substance: CAPECITABINE
     Indication: HER-2 POSITIVE GASTRIC CANCER
     Route: 048
     Dates: start: 20171117
  2. CISPLATIN. [Suspect]
     Active Substance: CISPLATIN
     Indication: HER-2 POSITIVE GASTRIC CANCER
     Route: 042
     Dates: start: 20171117

REACTIONS (1)
  - Dyspnoea [Recovering/Resolving]

NARRATIVE: CASE EVENT DATE: 20171120
